FAERS Safety Report 9348924 (Version 2)
Quarter: 2015Q3

REPORT INFORMATION
  Report Type: Spontaneous
  Country: JP (occurrence: JP)
  Receive Date: 20130614
  Receipt Date: 20150710
  Transmission Date: 20151125
  Serious: Yes (Death)
  Sender: FDA-Public Use
  Company Number: JP-009507513-1306JPN003227

PATIENT

DRUGS (1)
  1. DIAZOXIDE CAPSULES 25 MG ^MSD^ [Suspect]
     Active Substance: DIAZOXIDE
     Dosage: DOSAGE IS UNCERTAIN DURING A DAY
     Route: 048
     Dates: start: 20120316

REACTIONS (1)
  - Death [Fatal]
